FAERS Safety Report 7353484-3 (Version None)
Quarter: 2011Q1

REPORT INFORMATION
  Report Type: 
  Country: None (occurrence: None)
  Receive Date: 20110315
  Receipt Date: 20110309
  Transmission Date: 20110831
  Serious: Yes (Other)
  Sender: FDA-Public Use
  Company Number: NL-PFIZER INC-2009270084

PATIENT
  Age: 70 Year
  Sex: Female

DRUGS (2)
  1. PARACETAMOL [Concomitant]
     Dosage: 12 DF, 1X/DAY
  2. DEPO-MEDROL [Suspect]
     Indication: PAIN
     Dosage: EVERY 6 WEEKS
     Route: 030
     Dates: start: 20080401, end: 20090401

REACTIONS (16)
  - SOMNOLENCE [None]
  - DRY SKIN [None]
  - SKIN SWELLING [None]
  - LACRIMATION INCREASED [None]
  - PHOTOSENSITIVITY REACTION [None]
  - MENOPAUSE [None]
  - MUSCLE RUPTURE [None]
  - DISTURBANCE IN ATTENTION [None]
  - ALOPECIA [None]
  - MUSCLE ATROPHY [None]
  - PAIN [None]
  - FALL [None]
  - SKIN EXFOLIATION [None]
  - MUSCULAR WEAKNESS [None]
  - ERYTHEMA [None]
  - DRUG INEFFECTIVE [None]
